FAERS Safety Report 17889136 (Version 1)
Quarter: 2020Q2

REPORT INFORMATION
  Report Type: Report from Study
  Country: BE (occurrence: BE)
  Receive Date: 20200612
  Receipt Date: 20200612
  Transmission Date: 20200714
  Serious: Yes (Hospitalization, Disabling)
  Sender: FDA-Public Use
  Company Number: NVSC2019BE020947

PATIENT
  Age: 81 Year
  Sex: Female
  Weight: 57 kg

DRUGS (9)
  1. ACETYLSALICYLIC ACID LEIRAS [Concomitant]
     Indication: ANGIOPATHY
     Dosage: 80 MG
     Route: 065
     Dates: start: 2004
  2. FASLODEX [Concomitant]
     Active Substance: FULVESTRANT
     Indication: BREAST CANCER METASTATIC
     Dosage: UNK
     Route: 065
     Dates: start: 20190907
  3. BYL719 [Suspect]
     Active Substance: ALPELISIB
     Indication: BREAST CANCER METASTATIC
     Dosage: 300 MG, QD
     Route: 065
     Dates: start: 20190902, end: 20190907
  4. BYL719 [Suspect]
     Active Substance: ALPELISIB
     Dosage: 200 MG, QD
     Route: 048
     Dates: start: 20190907, end: 20200505
  5. SIMVASTATIN. [Concomitant]
     Active Substance: SIMVASTATIN
     Indication: PRODUCT USED FOR UNKNOWN INDICATION
     Dosage: 20 MG, QD
     Route: 048
  6. EMCONCOR [Concomitant]
     Active Substance: BISOPROLOL FUMARATE
     Indication: ANGIOPATHY
     Dosage: 2.5 MG, QD
     Route: 048
     Dates: start: 2004
  7. D-CURE [Concomitant]
     Active Substance: CHOLECALCIFEROL
     Indication: PRODUCT USED FOR UNKNOWN INDICATION
     Dosage: 25000 OT (IE/ML), QD
     Route: 048
  8. HYLO GEL [Concomitant]
     Indication: PRODUCT USED FOR UNKNOWN INDICATION
     Dosage: UNK
     Route: 047
  9. ASAFLOW [Concomitant]
     Active Substance: ASPIRIN
     Indication: PRODUCT USED FOR UNKNOWN INDICATION
     Dosage: 80 MG, QD
     Route: 048

REACTIONS (17)
  - Atrial fibrillation [Recovering/Resolving]
  - Mitral valve incompetence [Recovering/Resolving]
  - Pleural effusion [Unknown]
  - Cardiac failure [Recovering/Resolving]
  - Dyspnoea [Recovering/Resolving]
  - Blood test abnormal [Unknown]
  - N-terminal prohormone brain natriuretic peptide increased [Unknown]
  - Hypoalbuminaemia [Unknown]
  - Chronic kidney disease [Unknown]
  - Hypokalaemia [Unknown]
  - Orthopnoea [Unknown]
  - Cough [Unknown]
  - Oedema [Recovered/Resolved]
  - Concomitant disease progression [Recovering/Resolving]
  - Cardiomyopathy [Unknown]
  - Weight increased [Recovering/Resolving]
  - Decreased appetite [Unknown]

NARRATIVE: CASE EVENT DATE: 20200505
